FAERS Safety Report 4570282-4 (Version None)
Quarter: 2005Q1

REPORT INFORMATION
  Report Type: 
  Country: None (occurrence: None)
  Receive Date: 20050201
  Receipt Date: 20050110
  Transmission Date: 20050727
  Serious: Yes (Other)
  Sender: FDA-Public Use
  Company Number: GB-YAMANOUCHI-YEHQ20050100

PATIENT
  Age: 86 Year
  Sex: Female

DRUGS (8)
  1. VESICARE [Suspect]
     Dosage: 5 MG PO
     Route: 048
     Dates: start: 20041211, end: 20041217
  2. LEVOTHYROXINE SODIUM [Concomitant]
  3. LANSOPRAZOLE [Concomitant]
  4. HYPROMELLOSE [Concomitant]
  5. LOSARTAN [Concomitant]
  6. SOTALOL HCL [Concomitant]
  7. BENDROFLUAZIDE [Concomitant]
  8. DOXAZOSIN [Concomitant]

REACTIONS (1)
  - GASTROINTESTINAL HAEMORRHAGE [None]
